FAERS Safety Report 5056873-5 (Version None)
Quarter: 2006Q2

REPORT INFORMATION
  Report Type: 
  Country: None (occurrence: None)
  Receive Date: 20060620
  Receipt Date: 20060321
  Transmission Date: 20061013
  Serious: Yes (Hospitalization)
  Sender: FDA-Public Use
  Company Number: M-06-0248

PATIENT
  Age: 83 Year
  Sex: Male
  Weight: 81.6475 kg

DRUGS (6)
  1. PACERONE [Suspect]
     Indication: ARRHYTHMIA
     Dosage: 200 MG, QD, PO
     Route: 048
     Dates: end: 20060309
  2. COUMADIN [Concomitant]
  3. IMDUR [Concomitant]
  4. COZAAR [Concomitant]
  5. TENORMIN [Concomitant]
  6. ALLOPURINOL [Concomitant]

REACTIONS (1)
  - PULMONARY TOXICITY [None]
